FAERS Safety Report 18198767 (Version 6)
Quarter: 2020Q4

REPORT INFORMATION
  Report Type: Report from Study
  Country: JP (occurrence: JP)
  Receive Date: 20200826
  Receipt Date: 20201007
  Transmission Date: 20210113
  Serious: Yes (Hospitalization)
  Sender: FDA-Public Use
  Company Number: JP-PFIZER INC-2020323375

PATIENT
  Age: 73 Year
  Sex: Male
  Weight: 54.2 kg

DRUGS (20)
  1. PARIET [Concomitant]
     Active Substance: RABEPRAZOLE SODIUM
     Dosage: UNK
     Dates: start: 20200702, end: 20200819
  2. CETUXIMAB. [Suspect]
     Active Substance: CETUXIMAB
     Indication: COLON CANCER
     Dosage: 250 MG/M2, WEEKLY
     Route: 065
     Dates: start: 20200721, end: 20200810
  3. KYTRIL [Concomitant]
     Active Substance: GRANISETRON HYDROCHLORIDE
     Dosage: UNK
     Dates: start: 20200804, end: 20200819
  4. ENCORAFENIB [Suspect]
     Active Substance: ENCORAFENIB
     Dosage: 225 MG, DAILY
     Route: 048
     Dates: start: 20200903
  5. CETUXIMAB. [Suspect]
     Active Substance: CETUXIMAB
     Dosage: 200 MG/M2, WEEKLY
     Route: 065
     Dates: start: 20200903
  6. MAGNESIUM OXIDE. [Concomitant]
     Active Substance: MAGNESIUM OXIDE
     Dosage: UNK
     Dates: start: 202005, end: 20200819
  7. MINOCYCLINE HYDROCHLORIDE NICHIIKO [Concomitant]
     Active Substance: MINOCYCLINE HYDROCHLORIDE
     Dosage: UNK
     Dates: start: 20200721, end: 20200819
  8. BINIMETINIB [Suspect]
     Active Substance: BINIMETINIB
     Dosage: 30 MG, 2X/DAY (Q12H)
     Route: 048
     Dates: start: 20200811, end: 20200813
  9. ZOLPIDEM TARTRATE. [Concomitant]
     Active Substance: ZOLPIDEM TARTRATE
     Dosage: UNK
     Dates: start: 202004, end: 20200819
  10. NOVAMIN [PROCHLORPERAZINE MESILATE] [Concomitant]
     Dosage: UNK
     Dates: start: 20200804, end: 20200819
  11. LOPERAMIDE [LOPERAMIDE HYDROCHLORIDE] [Concomitant]
     Active Substance: LOPERAMIDE HYDROCHLORIDE
     Dosage: UNK
     Dates: start: 20200808, end: 20200819
  12. PITAVASTATIN CA [Concomitant]
     Active Substance: PITAVASTATIN CALCIUM
     Dosage: UNK
     Dates: start: 20200702, end: 20200819
  13. GLIMEPIRIDE. [Concomitant]
     Active Substance: GLIMEPIRIDE
     Dosage: UNK
     Dates: start: 2017, end: 20200819
  14. TAPENTA [Concomitant]
     Active Substance: TAPENTADOL HYDROCHLORIDE
     Dosage: UNK
     Dates: start: 20200721, end: 20200819
  15. ENCORAFENIB [Suspect]
     Active Substance: ENCORAFENIB
     Indication: COLON CANCER
     Dosage: 300 MG, DAILY
     Route: 048
     Dates: start: 20200721, end: 20200810
  16. ENCORAFENIB [Suspect]
     Active Substance: ENCORAFENIB
     Dosage: 225 MG, DAILY
     Route: 048
     Dates: start: 20200811, end: 20200813
  17. BINIMETINIB [Suspect]
     Active Substance: BINIMETINIB
     Dosage: 15 MG, 2X/DAY (Q12H)
     Route: 048
     Dates: start: 20200903
  18. BINIMETINIB [Suspect]
     Active Substance: BINIMETINIB
     Indication: COLON CANCER
     Dosage: 45 MG, 2X/DAY (Q12H)
     Route: 048
     Dates: start: 20200721, end: 20200810
  19. CETUXIMAB. [Suspect]
     Active Substance: CETUXIMAB
     Dosage: 200 MG/M2, WEEKLY
     Route: 065
     Dates: start: 20200811, end: 20200813
  20. LOXONIN [Concomitant]
     Active Substance: LOXOPROFEN SODIUM
     Dosage: UNK
     Dates: start: 20200702, end: 20200819

REACTIONS (1)
  - Decreased appetite [Recovered/Resolved]

NARRATIVE: CASE EVENT DATE: 20200818
